FAERS Safety Report 9597948 (Version 1)
Quarter: 2013Q4

REPORT INFORMATION
  Report Type: Spontaneous
  Country: US (occurrence: US)
  Receive Date: 20131004
  Receipt Date: 20131004
  Transmission Date: 20140711
  Serious: No
  Sender: FDA-Public Use
  Company Number: US-AMGEN-USASP2013021441

PATIENT
  Age: 51 Year
  Sex: Female
  Weight: 79.37 kg

DRUGS (13)
  1. ENBREL [Suspect]
     Indication: RHEUMATOID ARTHRITIS
     Dosage: UNK
     Dates: start: 20000101, end: 20040101
  2. ZETIA [Concomitant]
     Dosage: UNK
  3. PLAQUENIL                          /00072602/ [Concomitant]
     Dosage: UNK
  4. METHOTREXATE [Concomitant]
     Dosage: UNK
  5. FOLIC ACID [Concomitant]
     Dosage: UNK
  6. METFORMIN [Concomitant]
     Dosage: UNK
  7. IBUPROFEN [Concomitant]
     Dosage: UNK
  8. AMBIEN [Concomitant]
     Dosage: UNK
  9. ALDACTONE                          /00006201/ [Concomitant]
     Dosage: UNK
  10. BENAZEPRIL [Concomitant]
     Dosage: UNK
  11. EFFEXOR [Concomitant]
     Dosage: UNK
  12. FLEXERIL                           /00428402/ [Concomitant]
     Dosage: UNK
  13. LIPITOR [Concomitant]
     Dosage: UNK

REACTIONS (4)
  - Injection site reaction [Recovered/Resolved]
  - Injection site erythema [Recovered/Resolved]
  - Injection site swelling [Recovered/Resolved]
  - Injection site pruritus [Recovered/Resolved]
